FAERS Safety Report 7294863-2 (Version None)
Quarter: 2011Q1

REPORT INFORMATION
  Report Type: 
  Country: None (occurrence: None)
  Receive Date: 20110203
  Receipt Date: 20110117
  Transmission Date: 20110831
  Serious: Yes (Death)
  Sender: FDA-Public Use
  Company Number: B0694930A

PATIENT
  Age: 56 Year
  Sex: Male

DRUGS (2)
  1. PAROXETINE HYDROCHLORIDE [Suspect]
     Dosage: 25 MG/ ORAL
     Route: 048
  2. BUPROPION HYDROCHLORIDE [Concomitant]

REACTIONS (18)
  - CLONUS [None]
  - ELECTROCARDIOGRAM QT PROLONGED [None]
  - RESPIRATORY RATE INCREASED [None]
  - AGITATION [None]
  - OVERDOSE [None]
  - BLOOD GLUCOSE INCREASED [None]
  - COMPLETED SUICIDE [None]
  - SOMNOLENCE [None]
  - TREMOR [None]
  - HEART RATE INCREASED [None]
  - BLOOD SODIUM DECREASED [None]
  - MENTAL STATUS CHANGES [None]
  - ATRIOVENTRICULAR BLOCK FIRST DEGREE [None]
  - SEROTONIN SYNDROME [None]
  - CONFUSIONAL STATE [None]
  - FLUSHING [None]
  - AGONAL RHYTHM [None]
  - BLOOD PRESSURE INCREASED [None]
